FAERS Safety Report 16905767 (Version 1)
Quarter: 2019Q4

REPORT INFORMATION
  Report Type: Report from Study
  Country: US (occurrence: US)
  Receive Date: 20191010
  Receipt Date: 20191010
  Transmission Date: 20200122
  Serious: Yes (Other)
  Sender: FDA-Public Use
  Company Number: US-ACTELION-A-NJ2019-189138

PATIENT
  Sex: Male
  Weight: 112.02 kg

DRUGS (3)
  1. UPTRAVI [Suspect]
     Active Substance: SELEXIPAG
     Indication: PULMONARY HYPERTENSION
     Dosage: 600 MCG, BID
     Route: 048
  2. OPSUMIT [Concomitant]
     Active Substance: MACITENTAN
  3. UPTRAVI [Suspect]
     Active Substance: SELEXIPAG
     Dosage: 1200 MCG, BID
     Route: 048

REACTIONS (8)
  - Retinal detachment [Unknown]
  - Flushing [Unknown]
  - Pain [Unknown]
  - Retinopexy [Unknown]
  - Condition aggravated [Unknown]
  - Erythema [Unknown]
  - Restless legs syndrome [Unknown]
  - Pain in jaw [Unknown]
